FAERS Safety Report 14812795 (Version 1)
Quarter: 2018Q2

REPORT INFORMATION
  Report Type: Spontaneous
  Country: FR (occurrence: FR)
  Receive Date: 20180426
  Receipt Date: 20180426
  Transmission Date: 20180711
  Serious: Yes (Other)
  Sender: FDA-Public Use
  Company Number: FR-MERCK KGAA-2046522

PATIENT
  Sex: Female

DRUGS (1)
  1. NOVOTHYROX [Suspect]
     Active Substance: LEVOTHYROXINE SODIUM
     Indication: PRODUCT USED FOR UNKNOWN INDICATION

REACTIONS (19)
  - Weight increased [None]
  - Mood altered [None]
  - Respiratory disorder [None]
  - Persistent depressive disorder [None]
  - Anxiety [None]
  - Apathy [None]
  - Constipation [None]
  - Paraesthesia [None]
  - Asthenia [None]
  - Hypernatraemia [None]
  - Fluid retention [None]
  - Insomnia [None]
  - Psychomotor hyperactivity [None]
  - Physical disability [None]
  - Hypothyroidism [None]
  - Feeling of despair [None]
  - Dyspnoea [None]
  - Diffuse alopecia [None]
  - Gastrointestinal motility disorder [None]
